FAERS Safety Report 8598585-7 (Version None)
Quarter: 2012Q3

REPORT INFORMATION
  Report Type: 
  Country: None (occurrence: None)
  Receive Date: 20120816
  Receipt Date: 20120810
  Transmission Date: 20120928
  Serious: Yes (Other)
  Sender: FDA-Public Use
  Company Number: US-PFIZER INC-2012195774

PATIENT
  Sex: Female

DRUGS (1)
  1. EFFEXOR XR [Suspect]

REACTIONS (9)
  - PARAESTHESIA [None]
  - HYPOAESTHESIA [None]
  - SPEECH DISORDER [None]
  - ACTIVITIES OF DAILY LIVING IMPAIRED [None]
  - FIBROMYALGIA [None]
  - STRESS [None]
  - HEARING IMPAIRED [None]
  - THINKING ABNORMAL [None]
  - DEPRESSION [None]
